FAERS Safety Report 12871757 (Version 1)
Quarter: 2016Q4

REPORT INFORMATION
  Report Type: Spontaneous
  Country: US (occurrence: US)
  Receive Date: 20161021
  Receipt Date: 20161021
  Transmission Date: 20170207
  Serious: No
  Sender: FDA-Public Use
  Company Number: None

PATIENT

DRUGS (1)
  1. MAGNESIUM SULFATE INJECTION  MAGNESIUM SULFATE [Suspect]
     Active Substance: MAGNESIUM SULFATE

REACTIONS (2)
  - Incorrect dose administered [None]
  - Blood magnesium increased [None]
